FAERS Safety Report 20049590 (Version 1)
Quarter: 2021Q4

REPORT INFORMATION
  Report Type: Spontaneous
  Country: US (occurrence: US)
  Receive Date: 20211109
  Receipt Date: 20211109
  Transmission Date: 20220304
  Serious: Yes (Other)
  Sender: FDA-Public Use
  Company Number: US-MYLANLABS-2021M1080947

PATIENT
  Age: 67 Year
  Sex: Male

DRUGS (6)
  1. DEXAMETHASONE [Suspect]
     Active Substance: DEXAMETHASONE
     Indication: C3 glomerulopathy
     Dosage: 4 MILLIGRAM, QW
     Route: 065
     Dates: start: 201805
  2. DEXAMETHASONE [Suspect]
     Active Substance: DEXAMETHASONE
     Indication: Monoclonal gammopathy
  3. CYCLOPHOSPHAMIDE [Suspect]
     Active Substance: CYCLOPHOSPHAMIDE
     Indication: C3 glomerulopathy
     Dosage: 300 MILLIGRAM/SQ. METER, QW
     Route: 065
     Dates: start: 201805, end: 201811
  4. CYCLOPHOSPHAMIDE [Suspect]
     Active Substance: CYCLOPHOSPHAMIDE
     Indication: Monoclonal gammopathy
  5. BORTEZOMIB [Suspect]
     Active Substance: BORTEZOMIB
     Indication: C3 glomerulopathy
     Dosage: 1.5 MILLIGRAM/SQ. METER, QW, 1.5 MG/M2 WEEKLY, 4 WEEKS ON AND 2 WEEKS OFF
     Route: 065
     Dates: start: 201603
  6. BORTEZOMIB [Suspect]
     Active Substance: BORTEZOMIB
     Indication: Monoclonal gammopathy

REACTIONS (1)
  - Therapy non-responder [Unknown]
